FAERS Safety Report 8265745-4 (Version None)
Quarter: 2012Q2

REPORT INFORMATION
  Report Type: 
  Country: None (occurrence: None)
  Receive Date: 20120403
  Receipt Date: 20120320
  Transmission Date: 20120825
  Serious: No
  Sender: FDA-Public Use
  Company Number: NGX_00938_2012

PATIENT
  Sex: Female
  Weight: 68 kg

DRUGS (8)
  1. QUTENZA [Suspect]
     Indication: NEURALGIA
     Dosage: (2 DF, [PATCH, THORACIC AREA] TOPICAL)
     Route: 061
     Dates: start: 20110708, end: 20110708
  2. QUTENZA [Suspect]
     Indication: POST-THORACOTOMY PAIN SYNDROME
     Dosage: (2 DF, [PATCH, THORACIC AREA] TOPICAL)
     Route: 061
     Dates: start: 20110708, end: 20110708
  3. KATADOLON /00890102/ [Concomitant]
  4. NEXIUM [Concomitant]
  5. VALORON /00205402/ (UNKNOWN) [Concomitant]
  6. IBUPROFEN [Concomitant]
  7. LIDOCAINE [Concomitant]
  8. TILIDIN [Concomitant]

REACTIONS (5)
  - APPLICATION SITE PAIN [None]
  - DRUG TOLERANCE DECREASED [None]
  - APPLICATION SITE ERYTHEMA [None]
  - DRUG INEFFECTIVE [None]
  - NEURALGIA [None]
